FAERS Safety Report 7899961-8 (Version None)
Quarter: 2011Q4

REPORT INFORMATION
  Report Type: 
  Country: None (occurrence: None)
  Receive Date: 20111107
  Receipt Date: 20111018
  Transmission Date: 20120403
  Serious: No
  Sender: FDA-Public Use
  Company Number: US-AMGEN-USASP2011038319

PATIENT
  Age: 46 Year
  Sex: Male

DRUGS (3)
  1. TREXALL [Concomitant]
     Dosage: 1 MG, QWK
     Dates: start: 20110401
  2. ENBREL [Suspect]
     Indication: PSORIATIC ARTHROPATHY
     Dosage: 50 MG, QWK
     Dates: start: 20110709, end: 20111010
  3. ENBREL [Suspect]
     Indication: PSORIASIS

REACTIONS (4)
  - DRUG INEFFECTIVE [None]
  - INJECTION SITE HAEMORRHAGE [None]
  - INJECTION SITE PAIN [None]
  - ARTHRALGIA [None]
